FAERS Safety Report 8330355-7 (Version None)
Quarter: 2012Q2

REPORT INFORMATION
  Report Type: 
  Country: None (occurrence: None)
  Receive Date: 20120502
  Receipt Date: 20120426
  Transmission Date: 20120825
  Serious: Yes (Hospitalization)
  Sender: FDA-Public Use
  Company Number: US-AMGEN-KDL441833

PATIENT
  Age: 61 Year
  Sex: Female
  Weight: 77.098 kg

DRUGS (1)
  1. ENBREL [Suspect]
     Indication: RHEUMATOID ARTHRITIS
     Dosage: 25 MG, 2 TIMES/WK
     Route: 058
     Dates: start: 20030601

REACTIONS (3)
  - LOWER LIMB FRACTURE [None]
  - FALL [None]
  - IMPAIRED HEALING [None]
